FAERS Safety Report 6623563-4 (Version None)
Quarter: 2010Q1

REPORT INFORMATION
  Report Type: 
  Country: None (occurrence: None)
  Receive Date: 20100310
  Receipt Date: 20100226
  Transmission Date: 20100710
  Serious: Yes (Other)
  Sender: FDA-Public Use
  Company Number: GB-PFIZER INC-2010025646

PATIENT
  Sex: Male

DRUGS (2)
  1. VIAGRA [Suspect]
  2. CARBOXYMETHYLCELLULOSE SODIUM [Suspect]

REACTIONS (1)
  - ANAPHYLACTIC REACTION [None]
